FAERS Safety Report 15035561 (Version 6)
Quarter: 2018Q3

REPORT INFORMATION
  Report Type: Report from Study
  Country: AU (occurrence: AU)
  Receive Date: 20180620
  Receipt Date: 20180914
  Transmission Date: 20181010
  Serious: Yes (Hospitalization)
  Sender: FDA-Public Use
  Company Number: AU-ROCHE-2140374

PATIENT
  Age: 71 Year
  Sex: Female
  Weight: 57.15 kg

DRUGS (11)
  1. COBIMETINIB. [Suspect]
     Active Substance: COBIMETINIB
     Indication: MALIGNANT MELANOMA
     Dosage: DAYS 1?21 OF EACH 28?DAY CYCLE?DATE OF MOST RECENT DOSE OF COBIMETINIB PRIOR TO SAE ONSET: ON 13/JUN
     Route: 048
     Dates: start: 20170629
  2. METOPROLOL. [Concomitant]
     Active Substance: METOPROLOL
     Indication: HYPERTENSION
     Route: 048
     Dates: start: 2003
  3. NIZATIDINE. [Concomitant]
     Active Substance: NIZATIDINE
     Route: 048
     Dates: start: 201612
  4. ELOCON [Concomitant]
     Active Substance: MOMETASONE FUROATE
     Indication: RASH MACULO-PAPULAR
     Route: 065
     Dates: start: 20171227
  5. GASTROGEL (AUSTRALIA) [Concomitant]
     Route: 065
     Dates: start: 20170729
  6. ATEZOLIZUMAB. [Suspect]
     Active Substance: ATEZOLIZUMAB
     Indication: MALIGNANT MELANOMA
     Dosage: DAYS 1 AND 15 OF EACH 28?DAY CYCLE?DATE OF MOST RECENT DOSE OF ATEZOLIZUMAB PRIOR TO SERIOUS ADVERSE
     Route: 042
     Dates: start: 20170629
  7. CRANBERRY. [Concomitant]
     Active Substance: CRANBERRY
     Indication: URINARY TRACT INFECTION
     Route: 065
     Dates: start: 2016
  8. PERINDOPRIL [Concomitant]
     Active Substance: PERINDOPRIL
     Indication: HYPERTENSION
     Route: 048
     Dates: start: 20170725
  9. GASTROSTOP [Concomitant]
     Indication: DIARRHOEA
     Route: 065
     Dates: start: 20180207
  10. SOMAC [Concomitant]
     Active Substance: PANTOPRAZOLE SODIUM
     Route: 048
     Dates: start: 20170907
  11. SILICA [Concomitant]
     Active Substance: SILICON DIOXIDE
     Indication: ALOPECIA
     Route: 048
     Dates: start: 20171020

REACTIONS (1)
  - Stress cardiomyopathy [Recovered/Resolved]

NARRATIVE: CASE EVENT DATE: 20180613
